FAERS Safety Report 7946620-9 (Version None)
Quarter: 2011Q4

REPORT INFORMATION
  Report Type: 
  Country: None (occurrence: None)
  Receive Date: 20111129
  Receipt Date: 20111122
  Transmission Date: 20120403
  Serious: Yes (Other)
  Sender: FDA-Public Use
  Company Number: US-BRISTOL-MYERS SQUIBB COMPANY-16243750

PATIENT
  Age: 71 Year
  Sex: Female

DRUGS (1)
  1. AVAPRO [Suspect]
     Dosage: DOSE DECREASED TO 150MG DAILY ON 07JUL2011 1DF:150MG 2 PILLS
     Dates: start: 20100820, end: 20110722

REACTIONS (1)
  - HYPONATRAEMIA [None]
